FAERS Safety Report 9025297 (Version 1)
Quarter: 2013Q1

REPORT INFORMATION
  Report Type: Report from Study
  Country: CA (occurrence: CA)
  Receive Date: 20130122
  Receipt Date: 20130122
  Transmission Date: 20140127
  Serious: Yes (Other)
  Sender: FDA-Public Use
  Company Number: CA-UCBSA-075786

PATIENT
  Age: 71 Year
  Sex: Female
  Weight: 61 kg

DRUGS (6)
  1. CIMZIA [Suspect]
     Indication: RHEUMATOID ARTHRITIS
     Route: 058
     Dates: start: 20100708, end: 20130103
  2. FOLIC ACID [Concomitant]
     Indication: RHEUMATOID ARTHRITIS
     Route: 048
  3. OMEPRAZOLE [Concomitant]
  4. METHOTREXATE [Concomitant]
     Indication: RHEUMATOID ARTHRITIS
     Route: 048
     Dates: start: 200908
  5. PLAQUENIL [Concomitant]
     Indication: RHEUMATOID ARTHRITIS
     Route: 048
  6. SYNTHROID [Concomitant]
     Route: 048
     Dates: start: 20110128

REACTIONS (3)
  - Oral candidiasis [Not Recovered/Not Resolved]
  - Aphonia [Not Recovered/Not Resolved]
  - Oropharyngeal pain [Not Recovered/Not Resolved]
